FAERS Safety Report 4310498-5 (Version None)
Quarter: 2004Q1

REPORT INFORMATION
  Report Type: 
  Country: None (occurrence: None)
  Receive Date: 20040303
  Receipt Date: 20040223
  Transmission Date: 20041129
  Serious: Yes (Hospitalization)
  Sender: FDA-Public Use
  Company Number: PHRM2004FR00984

PATIENT
  Age: 77 Year
  Sex: Male

DRUGS (4)
  1. VOLTAREN [Suspect]
     Indication: SPINAL OSTEOARTHRITIS
     Dosage: 75 MG, QD
     Route: 048
     Dates: end: 20040220
  2. DAFALGAN [Concomitant]
  3. TRIATEC [Concomitant]
     Indication: HYPERTENSION
     Dosage: 5 MG, QD
     Route: 048
  4. FLECAINE [Concomitant]
     Indication: EXTRASYSTOLES

REACTIONS (3)
  - BLADDER DISORDER [None]
  - HAEMATURIA [None]
  - SINUS POLYP [None]
